FAERS Safety Report 16257594 (Version 1)
Quarter: 2019Q2

REPORT INFORMATION
  Report Type: Spontaneous
  Country: JP (occurrence: JP)
  Receive Date: 20190430
  Receipt Date: 20190430
  Transmission Date: 20190711
  Serious: Yes (Hospitalization)
  Sender: FDA-Public Use
  Company Number: JP-BAYER-2019-082490

PATIENT
  Age: 40 Year
  Sex: Female

DRUGS (2)
  1. EOB PRIMOVIST [Suspect]
     Active Substance: GADOXETATE DISODIUM
     Indication: HEPATIC NEOPLASM
     Dosage: UNK, ONCE
     Dates: start: 20190409, end: 20190409
  2. EOB PRIMOVIST [Suspect]
     Active Substance: GADOXETATE DISODIUM
     Indication: LIVER SCAN

REACTIONS (3)
  - Chills [Recovering/Resolving]
  - Peripheral coldness [Recovered/Resolved]
  - Erythema [Recovered/Resolved]

NARRATIVE: CASE EVENT DATE: 20190409
